FAERS Safety Report 10186094 (Version 1)
Quarter: 2014Q2

REPORT INFORMATION
  Report Type: Report from Study
  Country: US (occurrence: US)
  Receive Date: 20140521
  Receipt Date: 20140521
  Transmission Date: 20141212
  Serious: Yes (Other)
  Sender: FDA-Public Use
  Company Number: US-ABBVIE-14P-163-1236751-00

PATIENT
  Age: 85 Year
  Sex: Male

DRUGS (3)
  1. HUMIRA [Suspect]
     Indication: RHEUMATOID ARTHRITIS
     Dosage: YEARS
  2. HUMIRA [Suspect]
  3. ABOUT 5 UNNAMED MEDICATIONS [Concomitant]
     Indication: PRODUCT USED FOR UNKNOWN INDICATION

REACTIONS (3)
  - Volvulus [Recovered/Resolved]
  - Lung neoplasm malignant [Unknown]
  - Pain [Unknown]
